FAERS Safety Report 25096041 (Version 2)
Quarter: 2025Q2

REPORT INFORMATION
  Report Type: Spontaneous
  Country: US (occurrence: US)
  Receive Date: 20250319
  Receipt Date: 20250416
  Transmission Date: 20250716
  Serious: No
  Sender: AMGEN
  Company Number: US-AMGEN-USASP2025051371

PATIENT
  Age: 90 Year
  Sex: Male

DRUGS (3)
  1. REPATHA [Suspect]
     Active Substance: EVOLOCUMAB
     Indication: Product used for unknown indication
     Dosage: 140 MILLIGRAM, Q2WK
     Route: 058
     Dates: start: 20250114
  2. TRAMADOL [Concomitant]
     Active Substance: TRAMADOL
     Route: 065
  3. TYLENOL [Concomitant]
     Active Substance: ACETAMINOPHEN
     Route: 065

REACTIONS (5)
  - Headache [Unknown]
  - Accidental exposure to product [Unknown]
  - Injection site haemorrhage [Unknown]
  - Device difficult to use [Unknown]
  - Drug dose omission by device [Unknown]

NARRATIVE: CASE EVENT DATE: 20250228
